FAERS Safety Report 4695568-4 (Version None)
Quarter: 2005Q2

REPORT INFORMATION
  Report Type: 
  Country: None (occurrence: None)
  Receive Date: 20050523
  Receipt Date: 20050512
  Transmission Date: 20051028
  Serious: Yes (Hospitalization)
  Sender: FDA-Public Use
  Company Number: 2005UW07401

PATIENT
  Age: 54 Year
  Sex: Female
  Weight: 93 kg

DRUGS (10)
  1. ARIMIDEX [Suspect]
     Indication: BREAST CANCER
     Route: 048
     Dates: start: 20050301
  2. DEPAKOTE [Suspect]
  3. ZYPREXA [Concomitant]
  4. ZOCOR [Concomitant]
  5. MAXZIDE [Concomitant]
  6. DOXYCYCLINE [Concomitant]
  7. LEXAPRO [Concomitant]
  8. XANAX [Concomitant]
  9. ADVAIR [Concomitant]
  10. PREVAIL [Concomitant]

REACTIONS (9)
  - ALOPECIA [None]
  - ARTHRALGIA [None]
  - CELLULITIS [None]
  - CHEST PAIN [None]
  - GENERALISED OEDEMA [None]
  - INTENTIONAL MISUSE [None]
  - OVERDOSE [None]
  - SUICIDE ATTEMPT [None]
  - WEIGHT INCREASED [None]
